FAERS Safety Report 7954022-4 (Version None)
Quarter: 2011Q4

REPORT INFORMATION
  Report Type: 
  Country: None (occurrence: None)
  Receive Date: 20111202
  Receipt Date: 20111123
  Transmission Date: 20120403
  Serious: Yes (Death, Disabling)
  Sender: FDA-Public Use
  Company Number: US-CELGENEUS-163-21880-11091554

PATIENT
  Sex: Male

DRUGS (10)
  1. DEXAMETHASONE [Concomitant]
     Dosage: 40 MILLIGRAM
     Route: 065
  2. REVLIMID [Suspect]
     Indication: MULTIPLE MYELOMA
     Dosage: 15 MILLIGRAM
     Route: 048
     Dates: start: 20110701
  3. PERCOCET [Concomitant]
     Indication: BACK PAIN
     Dosage: 5/325
     Route: 065
     Dates: start: 20110701, end: 20110901
  4. ULTRAM [Concomitant]
     Indication: BACK PAIN
     Dosage: 50 MILLIGRAM
     Route: 065
     Dates: start: 20110701, end: 20110901
  5. SYNTHROID [Concomitant]
     Dosage: 100 MCG ALTERNATING WITH 125 DAILY
     Route: 065
  6. DURAGESIC-100 [Concomitant]
     Indication: BACK PAIN
     Dosage: 25 MICROGRAM
     Route: 065
     Dates: start: 20110912
  7. CALCIUM [Concomitant]
     Route: 065
  8. MULTI-VITAMINS [Concomitant]
     Route: 065
  9. OXYCONTIN [Concomitant]
     Indication: BACK PAIN
     Dosage: 10 MILLIGRAM
     Route: 065
     Dates: start: 20110909
  10. VITAMIN D [Concomitant]
     Route: 065

REACTIONS (4)
  - DEATH [None]
  - FATIGUE [None]
  - SARCOMA [None]
  - CONSTIPATION [None]
